FAERS Safety Report 24205697 (Version 3)
Quarter: 2024Q4

REPORT INFORMATION
  Report Type: Spontaneous
  Country: US (occurrence: US)
  Receive Date: 20240813
  Receipt Date: 20241209
  Transmission Date: 20250115
  Serious: No
  Sender: PFIZER
  Company Number: US-PFIZER INC-202400235206

PATIENT
  Age: 71 Year
  Sex: Female

DRUGS (1)
  1. IBRANCE [Suspect]
     Active Substance: PALBOCICLIB
     Indication: Breast cancer female
     Dosage: TAKE 1 TABLET BY MOUTH AS DIRECTED. TAKE DAYS 1-21 EVERY 28 DAYS
     Route: 048

REACTIONS (2)
  - Oropharyngeal discomfort [Unknown]
  - Multiple allergies [Unknown]
